FAERS Safety Report 4721393-1 (Version None)
Quarter: 2005Q3

REPORT INFORMATION
  Report Type: 
  Country: None (occurrence: None)
  Receive Date: 20050721
  Receipt Date: 20040805
  Transmission Date: 20060218
  Serious: No
  Sender: FDA-Public Use
  Company Number: US-BRISTOL-MYERS SQUIBB COMPANY-12662292

PATIENT
  Age: 70 Year
  Sex: Male
  Weight: 96 kg

DRUGS (3)
  1. COUMADIN [Suspect]
     Indication: ARRHYTHMIA
     Dosage: CURRENTLY ON 2.5MG 7 DAYS PER WEEK (17.5MG TOTAL DOSE)
     Dates: start: 20040704
  2. COUMADIN [Suspect]
     Indication: CARDIAC FAILURE CONGESTIVE
     Dosage: CURRENTLY ON 2.5MG 7 DAYS PER WEEK (17.5MG TOTAL DOSE)
     Dates: start: 20040704
  3. ASPIRIN [Concomitant]
     Route: 048
     Dates: start: 20040704

REACTIONS (2)
  - CONSTIPATION [None]
  - DIZZINESS [None]
